FAERS Safety Report 9550109 (Version 3)
Quarter: 2013Q4

REPORT INFORMATION
  Report Type: Spontaneous
  Country: US (occurrence: US)
  Receive Date: 20130924
  Receipt Date: 20131004
  Transmission Date: 20140711
  Serious: Yes (Hospitalization, Other)
  Sender: FDA-Public Use
  Company Number: US-UCBSA-095660

PATIENT
  Age: 22 Year
  Sex: Male
  Weight: 78 kg

DRUGS (5)
  1. VIMPAT [Suspect]
     Indication: CONVULSION
     Dates: start: 2012
  2. KEPPRA XR [Suspect]
     Indication: CONVULSION
     Dates: start: 2009
  3. KEPPRA XR [Suspect]
     Indication: CONVULSION
     Dosage: 500 MG 6 TABLETS DAILY
  4. CLONIPINE [Suspect]
     Dosage: UNSPECIFIED DOSE
  5. TOPRAMAX [Concomitant]
     Indication: CONVULSION
     Dates: start: 2012

REACTIONS (5)
  - Grand mal convulsion [Recovered/Resolved]
  - Convulsion [Not Recovered/Not Resolved]
  - Pharyngeal oedema [Unknown]
  - Inappropriate schedule of drug administration [Unknown]
  - Overdose [Unknown]
